FAERS Safety Report 7355119 (Version 3)
Quarter: 2015Q2

REPORT INFORMATION
  Report Type: Spontaneous
  Country: JP (occurrence: JP)
  Receive Date: 20100414
  Receipt Date: 20150422
  Transmission Date: 20150821
  Serious: Yes (Death)
  Sender: FDA-Public Use
  Company Number: JP-SANOFI-AVENTIS-2010SA021048

PATIENT
  Sex: Male
  Weight: 72 kg

DRUGS (10)
  1. GENTACIN [Concomitant]
     Active Substance: GENTAMICIN SULFATE
  2. PREDONINE [Concomitant]
     Active Substance: PREDNISOLONE\PREDNISOLONE ACETATE\PREDNISOLONE SODIUM SUCCINATE
  3. TAXOTERE [Suspect]
     Active Substance: DOCETAXEL
     Indication: PROSTATE CANCER RECURRENT
     Route: 051
     Dates: start: 20100330, end: 20100330
  4. TAXOTERE [Suspect]
     Active Substance: DOCETAXEL
     Indication: PROSTATE CANCER RECURRENT
     Route: 051
     Dates: start: 201004
  5. NASEA [Concomitant]
     Active Substance: RAMOSETRON HYDROCHLORIDE
  6. WARFARIN [Concomitant]
     Active Substance: WARFARIN
  7. PROTECADIN [Concomitant]
     Active Substance: LAFUTIDINE
  8. HARNAL [Concomitant]
     Active Substance: TAMSULOSIN HYDROCHLORIDE
  9. MAGNESIUM OXIDE. [Concomitant]
     Active Substance: MAGNESIUM OXIDE
  10. MOHRUS [Concomitant]
     Active Substance: KETOPROFEN

REACTIONS (5)
  - Acute kidney injury [Fatal]
  - Febrile neutropenia [Fatal]
  - Tumour lysis syndrome [Fatal]
  - Acidosis [Fatal]
  - Hyperkalaemia [Fatal]

NARRATIVE: CASE EVENT DATE: 20100405
